FAERS Safety Report 7033089-4 (Version None)
Quarter: 2010Q4

REPORT INFORMATION
  Report Type: 
  Country: None (occurrence: None)
  Receive Date: 20101007
  Receipt Date: 20100930
  Transmission Date: 20110411
  Serious: Yes (Other)
  Sender: FDA-Public Use
  Company Number: FR-PFIZER INC-2010124550

PATIENT
  Age: 60 Year
  Sex: Male

DRUGS (2)
  1. TRIFLUCAN [Suspect]
     Dosage: 50 MG, UNK
  2. TAHOR [Interacting]

REACTIONS (5)
  - DIARRHOEA [None]
  - DRUG INTERACTION [None]
  - LOSS OF CONSCIOUSNESS [None]
  - MALAISE [None]
  - VERTIGO [None]
